FAERS Safety Report 21770844 (Version 1)
Quarter: 2022Q4

REPORT INFORMATION
  Report Type: Spontaneous
  Country: US (occurrence: None)
  Receive Date: 20221222
  Receipt Date: 20221222
  Transmission Date: 20230113
  Serious: Yes (Hospitalization)
  Sender: FDA-Public Use
  Company Number: None

PATIENT
  Age: 80 Year
  Sex: Female

DRUGS (8)
  1. ADEMPAS [Suspect]
     Active Substance: RIOCIGUAT
     Indication: Pulmonary hypertension
     Dosage: 2.5MG TID ORAL?
     Route: 048
     Dates: start: 20160913
  2. WARFARIN [Concomitant]
     Active Substance: WARFARIN
  3. ALLOPURINOL [Concomitant]
     Active Substance: ALLOPURINOL
  4. POTASSIUM CHLORIDE [Concomitant]
     Active Substance: POTASSIUM CHLORIDE
  5. FUROSEMIDE [Concomitant]
     Active Substance: FUROSEMIDE
  6. LEVOTHYROXINE [Concomitant]
     Active Substance: LEVOTHYROXINE
  7. ROSUVASTATIN [Concomitant]
  8. oxygen intranasal [Concomitant]

REACTIONS (2)
  - Cellulitis [None]
  - Sepsis [None]

NARRATIVE: CASE EVENT DATE: 20221207
